FAERS Safety Report 20254273 (Version 1)
Quarter: 2021Q4

REPORT INFORMATION
  Report Type: Spontaneous
  Country: JP (occurrence: JP)
  Receive Date: 20211230
  Receipt Date: 20211230
  Transmission Date: 20220303
  Serious: Yes (Death)
  Sender: FDA-Public Use
  Company Number: JP-SPECGX-T202102607

PATIENT
  Age: 47 Year
  Sex: Male

DRUGS (5)
  1. METHADONE [Suspect]
     Active Substance: METHADONE HYDROCHLORIDE
     Indication: Cancer pain
     Dosage: 30 MILLIGRAM, QD
     Route: 048
  2. METHADONE [Suspect]
     Active Substance: METHADONE HYDROCHLORIDE
     Dosage: UNK (DOSE INCREASED)
     Route: 048
  3. METHADONE [Suspect]
     Active Substance: METHADONE HYDROCHLORIDE
     Dosage: 60 MILLIGRAM (DOSE INCREASED)
     Route: 048
  4. METHADONE [Suspect]
     Active Substance: METHADONE HYDROCHLORIDE
     Dosage: 30 MILLIGRAM (DOSE DECRESAED)
     Route: 048
  5. METHADONE [Suspect]
     Active Substance: METHADONE HYDROCHLORIDE
     Dosage: 20 MILLIGRAM
     Route: 048
     Dates: end: 20211210

REACTIONS (3)
  - Lung adenocarcinoma [Fatal]
  - Disease progression [Fatal]
  - Somnolence [Not Recovered/Not Resolved]
